FAERS Safety Report 17631605 (Version 1)
Quarter: 2020Q2

REPORT INFORMATION
  Report Type: Report from Study
  Country: US (occurrence: US)
  Receive Date: 20200406
  Receipt Date: 20200406
  Transmission Date: 20200713
  Serious: No
  Sender: FDA-Public Use
  Company Number: NVSC2020US090164

PATIENT
  Sex: Male

DRUGS (1)
  1. COSENTYX [Suspect]
     Active Substance: SECUKINUMAB
     Indication: PSORIATIC ARTHROPATHY
     Dosage: UNK, SUBCUTANEOUS, BENEATH THE SKIN, USUALLY VIA INJECTION, ONCE WEEKLY FOR 5 WEEKS THEN ONCE EVERY
     Route: 058
     Dates: start: 20200301

REACTIONS (1)
  - Injection site pain [Recovered/Resolved]
